FAERS Safety Report 18616717 (Version 4)
Quarter: 2021Q2

REPORT INFORMATION
  Report Type: Spontaneous
  Country: US (occurrence: US)
  Receive Date: 20201215
  Receipt Date: 20210416
  Transmission Date: 20210717
  Serious: Yes (Other)
  Sender: FDA-Public Use
  Company Number: US-SA-2020SA357425

PATIENT
  Age: 78 Year
  Sex: Male

DRUGS (1)
  1. DUPIXENT [Suspect]
     Active Substance: DUPILUMAB
     Indication: DERMATITIS ATOPIC
     Dosage: 300 MG, EVERY 14 DAYS
     Route: 058
     Dates: start: 20201014

REACTIONS (4)
  - COVID-19 [Unknown]
  - Fall [Unknown]
  - SARS-CoV-2 test positive [Unknown]
  - Hip fracture [Unknown]

NARRATIVE: CASE EVENT DATE: 20201211
